FAERS Safety Report 6839428-9 (Version None)
Quarter: 2010Q3

REPORT INFORMATION
  Report Type: 
  Country: None (occurrence: None)
  Receive Date: 20100714
  Receipt Date: 20100705
  Transmission Date: 20110219
  Serious: Yes (Other)
  Sender: FDA-Public Use
  Company Number: FR-ASTRAZENECA-2010SE31319

PATIENT
  Age: 50 Year
  Sex: Female

DRUGS (1)
  1. XYLOCAINE [Suspect]
     Indication: ANAESTHESIA
     Dates: start: 19880101

REACTIONS (3)
  - COLD SWEAT [None]
  - TACHYCARDIA [None]
  - TREMOR [None]
